FAERS Safety Report 23245738 (Version 1)
Quarter: 2023Q4

REPORT INFORMATION
  Report Type: Spontaneous
  Country: US (occurrence: US)
  Receive Date: 20231130
  Receipt Date: 20231130
  Transmission Date: 20240109
  Serious: Yes (Hospitalization)
  Sender: FDA-Public Use
  Company Number: US-009507513-2311USA009905

PATIENT
  Sex: Male

DRUGS (1)
  1. KEYTRUDA [Suspect]
     Active Substance: PEMBROLIZUMAB

REACTIONS (5)
  - Hospitalisation [Unknown]
  - Renal function test abnormal [Unknown]
  - Dehydration [Unknown]
  - Cough [Unknown]
  - Rotator cuff syndrome [Unknown]
